FAERS Safety Report 9980013 (Version 1)
Quarter: 2014Q1

REPORT INFORMATION
  Report Type: Report from Study
  Country: US (occurrence: US)
  Receive Date: 20140307
  Receipt Date: 20140307
  Transmission Date: 20141002
  Serious: No
  Sender: FDA-Public Use
  Company Number: US-ABBVIE-13P-163-1175909-00

PATIENT
  Age: 58 Year
  Sex: Female

DRUGS (7)
  1. HUMIRA [Suspect]
     Indication: RHEUMATOID ARTHRITIS
     Dates: start: 201309, end: 20131027
  2. METHOTREXATE [Concomitant]
     Indication: PRODUCT USED FOR UNKNOWN INDICATION
     Dosage: PILLS
  3. SYNTHROID [Concomitant]
     Indication: HYPOTHYROIDISM
     Dosage: EVERY MORNING
  4. BONIVA [Concomitant]
     Indication: BONE DISORDER
  5. SIMVASTATIN [Concomitant]
     Indication: BLOOD CHOLESTEROL
     Dates: start: 1994
  6. TRAMADOL [Concomitant]
     Indication: FIBROMYALGIA
  7. PREMPRO [Concomitant]
     Indication: OESTROGEN REPLACEMENT THERAPY

REACTIONS (8)
  - Activities of daily living impaired [Not Recovered/Not Resolved]
  - Abasia [Not Recovered/Not Resolved]
  - Local swelling [Not Recovered/Not Resolved]
  - Aphasia [Not Recovered/Not Resolved]
  - Grip strength decreased [Not Recovered/Not Resolved]
  - Fibromyalgia [Not Recovered/Not Resolved]
  - Arthritis [Not Recovered/Not Resolved]
  - Drug effect decreased [Not Recovered/Not Resolved]
